FAERS Safety Report 8423736-4 (Version None)
Quarter: 2012Q2

REPORT INFORMATION
  Report Type: 
  Country: None (occurrence: None)
  Receive Date: 20120608
  Receipt Date: 20120124
  Transmission Date: 20120825
  Serious: No
  Sender: FDA-Public Use
  Company Number: US-ASTRAZENECA-2012SE05245

PATIENT
  Sex: Female
  Weight: 67.1 kg

DRUGS (6)
  1. FISH OIL [Concomitant]
  2. ATACAND [Suspect]
     Indication: MIGRAINE PROPHYLAXIS
     Route: 048
  3. CLARITIN [Concomitant]
  4. THYROID TAB [Concomitant]
  5. PRILOSEC [Concomitant]
  6. VITAMIN TAB [Concomitant]

REACTIONS (5)
  - ANXIETY [None]
  - DEPRESSION [None]
  - GASTROOESOPHAGEAL REFLUX DISEASE [None]
  - DYSPEPSIA [None]
  - OFF LABEL USE [None]
